FAERS Safety Report 13483601 (Version 2)
Quarter: 2017Q2

REPORT INFORMATION
  Report Type: Spontaneous
  Country: JP (occurrence: JP)
  Receive Date: 20170426
  Receipt Date: 20170503
  Transmission Date: 20170830
  Serious: Yes (Other)
  Sender: FDA-Public Use
  Company Number: JP-JNJFOC-20170417588

PATIENT
  Sex: Female

DRUGS (1)
  1. LISTERINE NATURALS ANTISEPTIC - HERBAL MINT [Suspect]
     Active Substance: EUCALYPTOL\MENTHOL\METHYL SALICYLATE\THYMOL
     Indication: DENTAL DISORDER PROPHYLAXIS
     Route: 065
     Dates: start: 201704, end: 20170414

REACTIONS (7)
  - Dyspnoea [Recovering/Resolving]
  - Palpitations [Unknown]
  - Hypersensitivity [Unknown]
  - Sensory loss [Recovering/Resolving]
  - Chapped lips [Recovering/Resolving]
  - Sensation of foreign body [Unknown]
  - Lip swelling [Unknown]

NARRATIVE: CASE EVENT DATE: 201704
